FAERS Safety Report 7156003-X (Version None)
Quarter: 2010Q4

REPORT INFORMATION
  Report Type: 
  Country: None (occurrence: None)
  Receive Date: 20101123
  Receipt Date: 20100901
  Transmission Date: 20110411
  Serious: Yes (Hospitalization)
  Sender: FDA-Public Use
  Company Number: 017284

PATIENT
  Sex: Female
  Weight: 64.9 kg

DRUGS (14)
  1. CIMZIA [Suspect]
     Indication: CROHN'S DISEASE
     Dosage: 400 MG 1X/4 WEEKS SUBCUTANEOUS
     Route: 058
     Dates: start: 20100222
  2. PREDNISONE [Concomitant]
  3. TERGETROL [Concomitant]
  4. TRANXENE [Concomitant]
  5. AMITRIPTYLINE [Concomitant]
  6. LUNESTA [Concomitant]
  7. BEROCCA /01327001/ [Concomitant]
  8. VITAMIN B12 /00260201/ [Concomitant]
  9. CENESTIN [Concomitant]
  10. AMTRIPTYLINE [Concomitant]
  11. LORTAB [Concomitant]
  12. PHENERGAN HCL [Concomitant]
  13. TORADOL [Concomitant]
  14. OXYCODONE HCL [Concomitant]

REACTIONS (5)
  - ABDOMINAL PAIN [None]
  - CHEST PAIN [None]
  - CONFUSIONAL STATE [None]
  - FATIGUE [None]
  - SPEECH DISORDER [None]
